FAERS Safety Report 6833726-0 (Version None)
Quarter: 2010Q3

REPORT INFORMATION
  Report Type: 
  Country: None (occurrence: None)
  Receive Date: 20100712
  Receipt Date: 20070330
  Transmission Date: 20110219
  Serious: No
  Sender: FDA-Public Use
  Company Number: US-PFIZER INC-2007027307

PATIENT
  Sex: Female
  Weight: 48.53 kg

DRUGS (2)
  1. CHANTIX [Suspect]
     Indication: SMOKING CESSATION THERAPY
     Dates: start: 20070202
  2. VITAMINS [Concomitant]

REACTIONS (5)
  - ABNORMAL DREAMS [None]
  - DYSGEUSIA [None]
  - FATIGUE [None]
  - MUSCULAR WEAKNESS [None]
  - WEIGHT INCREASED [None]
